FAERS Safety Report 10009481 (Version 1)
Quarter: 2014Q1

REPORT INFORMATION
  Report Type: Spontaneous
  Country: US (occurrence: US)
  Receive Date: 20140312
  Receipt Date: 20140312
  Transmission Date: 20141002
  Serious: No
  Sender: FDA-Public Use
  Company Number: US-INCYTE CORPORATION-2012IN001597

PATIENT
  Sex: Female

DRUGS (7)
  1. JAKAFI [Suspect]
     Dosage: 15 MG, BID
     Route: 048
  2. GABAPENTIN [Concomitant]
  3. SIMVASTATIN [Concomitant]
  4. PREVACID [Concomitant]
  5. NASAL PREPARATIONS (NASAL SPRAY) [Concomitant]
  6. VITAMIN D [Concomitant]
  7. IMODIUM ADVANCED [Concomitant]

REACTIONS (1)
  - Diarrhoea [Unknown]
